FAERS Safety Report 20467985 (Version 1)
Quarter: 2022Q1

REPORT INFORMATION
  Report Type: Spontaneous
  Country: DE (occurrence: DE)
  Receive Date: 20220214
  Receipt Date: 20220214
  Transmission Date: 20220423
  Serious: No
  Sender: FDA-Public Use
  Company Number: DE-ALKEM LABORATORIES LIMITED-DE-ALKEM-2021-07461

PATIENT
  Sex: Female
  Weight: 60 kg

DRUGS (7)
  1. EZETIMIBE [Suspect]
     Active Substance: EZETIMIBE
     Indication: Blood cholesterol increased
     Dosage: UNK UNK, QD
     Route: 065
     Dates: start: 201207
  2. SIMVASTATIN [Suspect]
     Active Substance: SIMVASTATIN
     Indication: Blood cholesterol increased
     Dosage: UNK UNK, QD
     Route: 065
     Dates: start: 202103
  3. Comirnaty [COVID-19 VACCINE] [Concomitant]
     Indication: Product used for unknown indication
     Dosage: UNK
     Route: 065
     Dates: start: 20210502
  4. Comirnaty [COVID-19 VACCINE] [Concomitant]
     Dosage: UNK
     Route: 065
     Dates: start: 20210611
  5. L-Thyrox HEXAL 75 MG [L-Thyrox] [Concomitant]
     Indication: Hypothyroidism
     Dosage: UNK UNK, QD
     Route: 065
     Dates: start: 202109
  6. Omeprazole 20 Mg [Omeprazole] [Concomitant]
     Indication: Prophylaxis
     Dosage: UNK UNK, QD
     Route: 065
     Dates: start: 202108
  7. Ramilich 5 Mg [Ramilich] [Concomitant]
     Indication: Hypertension
     Dosage: 2.5 MILLIGRAM, QD
     Route: 065
     Dates: start: 201909

REACTIONS (2)
  - Back pain [Not Recovered/Not Resolved]
  - Myalgia [Not Recovered/Not Resolved]

NARRATIVE: CASE EVENT DATE: 20210501
